FAERS Safety Report 17710516 (Version 1)
Quarter: 2020Q2

REPORT INFORMATION
  Report Type: Report from Study
  Country: BR (occurrence: BR)
  Receive Date: 20200427
  Receipt Date: 20200427
  Transmission Date: 20200714
  Serious: Yes (Other)
  Sender: FDA-Public Use
  Company Number: NVSC2020BR108685

PATIENT
  Sex: Male

DRUGS (2)
  1. GABAPENTINA [Suspect]
     Active Substance: GABAPENTIN
     Indication: MYALGIA
     Dosage: UNK
     Route: 065
  2. TRILEPTAL [Suspect]
     Active Substance: OXCARBAZEPINE
     Indication: SEIZURE
     Dosage: 300 MG, 8 PER DAY
     Route: 065
     Dates: start: 201910

REACTIONS (10)
  - Facial pain [Unknown]
  - Extra dose administered [Unknown]
  - Pain [Unknown]
  - Eye pain [Unknown]
  - Trigeminal neuralgia [Unknown]
  - Blindness unilateral [Unknown]
  - Vascular pain [Unknown]
  - Tremor [Unknown]
  - Lacrimation increased [Unknown]
  - Product dose omission [Unknown]
